FAERS Safety Report 15508218 (Version 2)
Quarter: 2018Q4

REPORT INFORMATION
  Report Type: Spontaneous
  Country: US (occurrence: US)
  Receive Date: 20181016
  Receipt Date: 20181116
  Transmission Date: 20190205
  Serious: Yes (Hospitalization)
  Sender: FDA-Public Use
  Company Number: US-JNJFOC-20181009272

PATIENT
  Age: 75 Year
  Sex: Female

DRUGS (1)
  1. TREMFYA [Suspect]
     Active Substance: GUSELKUMAB
     Indication: PSORIASIS
     Route: 058
     Dates: start: 20180508

REACTIONS (7)
  - Malaise [Not Recovered/Not Resolved]
  - Device malfunction [Unknown]
  - Arthritis infective [Not Recovered/Not Resolved]
  - Pulmonary oedema [Unknown]
  - Decreased immune responsiveness [Not Recovered/Not Resolved]
  - Product dose omission [Not Recovered/Not Resolved]
  - Respiratory disorder [Not Recovered/Not Resolved]

NARRATIVE: CASE EVENT DATE: 201808
